FAERS Safety Report 4483814-1 (Version None)
Quarter: 2004Q4

REPORT INFORMATION
  Report Type: 
  Country: None (occurrence: None)
  Receive Date: 20041025
  Receipt Date: 20041018
  Transmission Date: 20050328
  Serious: Yes (Other)
  Sender: FDA-Public Use
  Company Number: PHBS2004CA13980

PATIENT
  Age: 72 Year
  Sex: Female

DRUGS (4)
  1. ZELNORM [Suspect]
     Indication: CONSTIPATION
     Dosage: 12 MG/DAY
     Route: 048
     Dates: start: 20040918, end: 20041017
  2. EVISTA [Concomitant]
  3. CALCIUM [Concomitant]
  4. MEVACOR [Concomitant]

REACTIONS (11)
  - AGGRESSION [None]
  - ANXIETY [None]
  - BACK PAIN [None]
  - DIZZINESS [None]
  - FLUSHING [None]
  - HEADACHE [None]
  - LIP PAIN [None]
  - MOOD ALTERED [None]
  - OEDEMA PERIPHERAL [None]
  - PARANOIA [None]
  - SWELLING FACE [None]
